FAERS Safety Report 6139928-3 (Version None)
Quarter: 2009Q1

REPORT INFORMATION
  Report Type: 
  Country: None (occurrence: None)
  Receive Date: 20090331
  Receipt Date: 20090331
  Transmission Date: 20090719
  Serious: No
  Sender: FDA-Public Use
  Company Number: None

PATIENT
  Age: 52 Year
  Sex: Female
  Weight: 91.17 kg

DRUGS (2)
  1. GABAPENTIN [Suspect]
     Indication: PAIN
     Dosage: 300 MG AT BEDTIME PO;100 MG AT BEDTIME
     Route: 048
     Dates: start: 20090318, end: 20090318
  2. GABAPENTIN [Suspect]
     Indication: PAIN
     Dosage: 300 MG AT BEDTIME PO;100 MG AT BEDTIME
     Route: 048
     Dates: start: 20090319, end: 20090319

REACTIONS (3)
  - DYSPNOEA [None]
  - SWOLLEN TONGUE [None]
  - WHEEZING [None]
